FAERS Safety Report 10129915 (Version 1)
Quarter: 2014Q2

REPORT INFORMATION
  Report Type: Spontaneous
  Country: JP (occurrence: None)
  Receive Date: 20140424
  Receipt Date: 20140424
  Transmission Date: 20141212
  Serious: Yes (Life-Threatening, Hospitalization)
  Sender: FDA-Public Use
  Company Number: ADR-2009-7428

PATIENT
  Age: 61 Year
  Sex: Male
  Weight: 76 kg

DRUGS (3)
  1. GABALON INTRATHECAL (BACLOFEN INJECTION) [Suspect]
     Indication: MUSCLE SPASTICITY
     Dates: start: 20090512
  2. NORVASC ORAL [Suspect]
  3. RILUTEK [Suspect]
     Route: 048

REACTIONS (10)
  - Urinary tract infection [None]
  - Septic shock [None]
  - Tremor [None]
  - Convulsion [None]
  - Muscle tightness [None]
  - Respiratory distress [None]
  - Hypotension [None]
  - Erythema [None]
  - Pyelonephritis [None]
  - Urinary retention [None]
